FAERS Safety Report 22993258 (Version 3)
Quarter: 2023Q4

REPORT INFORMATION
  Report Type: Spontaneous
  Country: US (occurrence: US)
  Receive Date: 20230927
  Receipt Date: 20231024
  Transmission Date: 20240109
  Serious: Yes (Death)
  Sender: FDA-Public Use
  Company Number: US-PFIZER INC-202300310808

PATIENT
  Age: 84 Year
  Sex: Male

DRUGS (2)
  1. BRAFTOVI [Suspect]
     Active Substance: ENCORAFENIB
     Indication: Neoplasm malignant
     Dosage: 4 DF, 1X/DAY (4 CAPSULES BY MOUTH ONCE DAILY)
     Route: 048
     Dates: start: 202309
  2. BRAFTOVI [Suspect]
     Active Substance: ENCORAFENIB
     Dosage: 150 MG, 1X/DAY (TWO CAPSULES ONCE DAILY BY MOUTH)
     Route: 048
     Dates: start: 20230908

REACTIONS (3)
  - Neoplasm progression [Fatal]
  - Fatigue [Recovering/Resolving]
  - Off label use [Unknown]

NARRATIVE: CASE EVENT DATE: 20230901
